FAERS Safety Report 16644719 (Version 3)
Quarter: 2020Q4

REPORT INFORMATION
  Report Type: Spontaneous
  Country: US (occurrence: US)
  Receive Date: 20190729
  Receipt Date: 20201005
  Transmission Date: 20210113
  Serious: Yes (Other)
  Sender: FDA-Public Use
  Company Number: US-SA-2019SA197802

PATIENT

DRUGS (1)
  1. LANTUS SOLOSTAR [Suspect]
     Active Substance: INSULIN GLARGINE
     Indication: TYPE 2 DIABETES MELLITUS
     Dosage: 40 IU, ONCE EVERY MORNING AND ONCE EVERY EVENING
     Route: 065
     Dates: start: 2010

REACTIONS (2)
  - Blindness unilateral [Unknown]
  - Inappropriate schedule of product administration [Unknown]
